FAERS Safety Report 13178612 (Version 1)
Quarter: 2017Q1

REPORT INFORMATION
  Report Type: Spontaneous
  Country: US (occurrence: US)
  Receive Date: 20170202
  Receipt Date: 20170202
  Transmission Date: 20170428
  Serious: Yes (Hospitalization)
  Sender: FDA-Public Use
  Company Number: US-SUN PHARMACEUTICAL INDUSTRIES LTD-2017US-132653

PATIENT
  Sex: Female

DRUGS (4)
  1. PALIPERIDONE. [Suspect]
     Active Substance: PALIPERIDONE
     Indication: MAJOR DEPRESSION
     Dosage: UNK
     Route: 065
  2. OLANZAPINE. [Suspect]
     Active Substance: OLANZAPINE
     Indication: MAJOR DEPRESSION
     Dosage: UNK
     Route: 065
  3. SERTRALINE [Suspect]
     Active Substance: SERTRALINE HYDROCHLORIDE
     Indication: MAJOR DEPRESSION
     Dosage: UNK
     Route: 065
  4. RISPERIDONE. [Suspect]
     Active Substance: RISPERIDONE
     Indication: MAJOR DEPRESSION
     Dosage: UNK
     Route: 065

REACTIONS (4)
  - Catatonia [Unknown]
  - Tachycardia [Unknown]
  - Mental disorder [Not Recovered/Not Resolved]
  - Pyrexia [Unknown]
